FAERS Safety Report 9328692 (Version 1)
Quarter: 2013Q2

REPORT INFORMATION
  Report Type: Spontaneous
  Country: US (occurrence: US)
  Receive Date: 20130604
  Receipt Date: 20130604
  Transmission Date: 20140414
  Serious: No
  Sender: FDA-Public Use
  Company Number: US-SANOFI-AVENTIS-2012SA063840

PATIENT
  Age: 46 Year
  Sex: Male
  Weight: 122 kg

DRUGS (12)
  1. LANTUS SOLOSTAR [Suspect]
     Dosage: DOSE:48 UNIT(S)
     Route: 058
     Dates: start: 20120606
  2. SOLOSTAR [Suspect]
     Dates: start: 20120606
  3. ANTIPYRINE W/BENZOCAINE [Concomitant]
     Dosage: 5.5-1 4% 2 DROP UP TO THREE TIMES DAILY AS NEEDED.
  4. ASPIRIN [Concomitant]
     Route: 048
  5. VITAMIN D3 [Concomitant]
     Dosage: DOSE:3000 UNIT(S)
     Route: 048
  6. FENOFIBRATE [Concomitant]
     Route: 048
  7. HUMALOG [Concomitant]
     Dosage: DOSE:10 UNIT(S)
     Route: 058
  8. VICTOZA [Concomitant]
  9. MEVACOR [Concomitant]
     Route: 048
  10. METFORMIN [Concomitant]
     Route: 048
  11. NIASPAN [Concomitant]
     Route: 048
  12. OMEGA 3 [Concomitant]
     Route: 048

REACTIONS (3)
  - Vision blurred [Unknown]
  - Visual impairment [Unknown]
  - Blood glucose increased [Unknown]
